FAERS Safety Report 10842982 (Version 2)
Quarter: 2015Q1

REPORT INFORMATION
  Report Type: Report from Study
  Country: JP (occurrence: JP)
  Receive Date: 20150220
  Receipt Date: 20150225
  Transmission Date: 20150721
  Serious: Yes (Other)
  Sender: FDA-Public Use
  Company Number: JP-EISAI MEDICAL RESEARCH-EC-2015-004137

PATIENT
  Age: 78 Year
  Sex: Female

DRUGS (11)
  1. ARICEPT [Suspect]
     Active Substance: DONEPEZIL HYDROCHLORIDE
     Indication: DEMENTIA ALZHEIMER^S TYPE
     Route: 048
     Dates: start: 20131114, end: 20131120
  2. ARICEPT [Suspect]
     Active Substance: DONEPEZIL HYDROCHLORIDE
     Route: 048
     Dates: start: 20131121, end: 20131223
  3. AVAPRO [Concomitant]
     Active Substance: IRBESARTAN
  4. MAGMITT [Concomitant]
     Active Substance: MAGNESIUM OXIDE
  5. LIPITOR [Concomitant]
     Active Substance: ATORVASTATIN CALCIUM
  6. BAYASPIRIN [Concomitant]
     Active Substance: ASPIRIN
  7. CARBAMAZEPINE. [Concomitant]
     Active Substance: CARBAMAZEPINE
  8. PLETAAL [Concomitant]
     Active Substance: CILOSTAZOL
  9. NORVASC [Concomitant]
     Active Substance: AMLODIPINE BESYLATE
  10. MAINTATE [Concomitant]
     Active Substance: BISOPROLOL FUMARATE
  11. LAXODATE [Concomitant]

REACTIONS (1)
  - Electrocardiogram QT prolonged [Unknown]

NARRATIVE: CASE EVENT DATE: 20131217
